FAERS Safety Report 10588678 (Version 1)
Quarter: 2014Q4

REPORT INFORMATION
  Report Type: Report from Study
  Country: US (occurrence: US)
  Receive Date: 20141117
  Receipt Date: 20141117
  Transmission Date: 20150529
  Serious: Yes (Death)
  Sender: FDA-Public Use
  Company Number: US-GLAXOSMITHKLINE-US2014GSK022291

PATIENT

DRUGS (4)
  1. MELPHALAN [Suspect]
     Active Substance: MELPHALAN
     Indication: HIV INFECTION
     Dosage: 140 MG/M2, UNK
  2. ETOPOSIDE. [Suspect]
     Active Substance: ETOPOSIDE
     Indication: HIV INFECTION
     Dosage: 100 UNK, BID
  3. CARMUSTINE [Suspect]
     Active Substance: CARMUSTINE
     Indication: HIV INFECTION
     Dosage: 300 MG/M2, UNK
  4. CYTARABINE. [Suspect]
     Active Substance: CYTARABINE
     Indication: HIV INFECTION
     Dosage: 100 UNK, UNK

REACTIONS (1)
  - Organ failure [Fatal]
